FAERS Safety Report 7598185-1 (Version None)
Quarter: 2011Q3

REPORT INFORMATION
  Report Type: 
  Country: None (occurrence: None)
  Receive Date: 20110708
  Receipt Date: 20110701
  Transmission Date: 20111222
  Serious: Yes (Other)
  Sender: FDA-Public Use
  Company Number: US-SANOFI-AVENTIS-2011SA042801

PATIENT
  Age: 63 Year
  Sex: Female

DRUGS (4)
  1. SODIUM CHLORIDE [Concomitant]
  2. LANTUS [Suspect]
     Indication: TYPE 2 DIABETES MELLITUS
  3. NOVOLOG [Suspect]
     Indication: TYPE 2 DIABETES MELLITUS
     Route: 065
  4. HYDROCHLOROTHIAZIDE [Concomitant]
     Route: 065

REACTIONS (4)
  - INTRADUCTAL PAPILLARY MUCINOUS NEOPLASM [None]
  - HYPERSENSITIVITY [None]
  - PRURITUS GENERALISED [None]
  - CIRCUMORAL OEDEMA [None]
